FAERS Safety Report 21811390 (Version 1)
Quarter: 2023Q1

REPORT INFORMATION
  Report Type: Spontaneous
  Country: AT (occurrence: AT)
  Receive Date: 20230103
  Receipt Date: 20230103
  Transmission Date: 20230418
  Serious: Yes (Death, Life-Threatening, Hospitalization, Other)
  Sender: FDA-Public Use
  Company Number: AT-PFIZER INC-PV202200133495

PATIENT
  Age: 43 Year
  Sex: Male

DRUGS (9)
  1. DOXYCYCLINE HYCLATE [Suspect]
     Active Substance: DOXYCYCLINE HYCLATE
     Indication: Plasmodium falciparum infection
     Dosage: 100 MG, 2X/DAY
  2. NOREPINEPHRINE [Suspect]
     Active Substance: NOREPINEPHRINE
     Indication: Blood pressure abnormal
     Dosage: 0.25 MCG/KG/MIN
  3. HEPARIN [Suspect]
     Active Substance: HEPARIN SODIUM
     Indication: Disseminated intravascular coagulation
     Dosage: UNK, LOW DOSE
  4. ARTESUNATE [Suspect]
     Active Substance: ARTESUNATE
     Indication: Plasmodium falciparum infection
     Dosage: 2.4 MG/KG IMMEDIATELY
     Route: 042
  5. ARTESUNATE [Suspect]
     Active Substance: ARTESUNATE
     Dosage: 2.4 MG/KG 12HRS
     Route: 042
  6. ARTESUNATE [Suspect]
     Active Substance: ARTESUNATE
     Dosage: 2.4 MG/KG 24HRS
     Route: 042
  7. ARTESUNATE [Suspect]
     Active Substance: ARTESUNATE
     Dosage: 2.4 MG/KG EVERY 24HRS FOR A TOTAL OF 6 DOSES
     Route: 042
  8. PROGUANIL [Suspect]
     Active Substance: PROGUANIL
     Indication: Plasmodium falciparum infection
     Dosage: UNK, DAYS 5-7
  9. ATOVAQUONE [Suspect]
     Active Substance: ATOVAQUONE
     Indication: Plasmodium falciparum infection
     Dosage: UNK, DAYS 5-7

REACTIONS (1)
  - Drug ineffective [Fatal]
